FAERS Safety Report 9379356 (Version 2)
Quarter: 2013Q3

REPORT INFORMATION
  Report Type: Report from Study
  Country: DE (occurrence: DE)
  Receive Date: 20130702
  Receipt Date: 20130723
  Transmission Date: 20140515
  Serious: Yes (Hospitalization)
  Sender: FDA-Public Use
  Company Number: DE-AMGEN-DEUCT2013046472

PATIENT
  Age: 7 Year
  Sex: Female
  Weight: 27 kg

DRUGS (6)
  1. ETANERCEPT [Suspect]
     Indication: JUVENILE IDIOPATHIC ARTHRITIS
     Dosage: 20 MG, QMO
     Route: 058
     Dates: start: 20120801, end: 20130519
  2. ETANERCEPT [Suspect]
     Dosage: 20 MG, QMO
     Route: 065
     Dates: start: 20130617
  3. METHOTREXATE SODIUM [Concomitant]
     Indication: JUVENILE IDIOPATHIC ARTHRITIS
     Dosage: 12.5 MG, 1X / MONTH
     Route: 048
     Dates: start: 200706, end: 201103
  4. METHOTREXATE SODIUM [Concomitant]
     Dosage: 12.5 MG, 1X / MONTH
     Route: 048
     Dates: start: 20120501, end: 20130519
  5. METHOTREXATE SODIUM [Concomitant]
     Dosage: 12.5 MG, 1X/ MONTH
     Route: 065
     Dates: start: 20130617
  6. VALPROIC ACID [Concomitant]
     Indication: PETIT MAL EPILEPSY
     Dosage: 250 MG, UNK
     Route: 048
     Dates: start: 20100101

REACTIONS (2)
  - Systemic inflammatory response syndrome [Recovered/Resolved]
  - Infection [Recovered/Resolved]
